FAERS Safety Report 9989016 (Version 2)
Quarter: 2014Q1

REPORT INFORMATION
  Report Type: Report from Study
  Country: US (occurrence: US)
  Receive Date: 20140310
  Receipt Date: 20140310
  Transmission Date: 20141002
  Serious: No
  Sender: FDA-Public Use
  Company Number: US-ABBVIE-13P-163-1118540-00

PATIENT
  Age: 48 Year
  Sex: Female
  Weight: 39.95 kg

DRUGS (2)
  1. HUMIRA [Suspect]
     Indication: CROHN^S DISEASE
     Dosage: LODING DOSE
     Dates: start: 20130701
  2. CALCIUM [Concomitant]
     Indication: PRODUCT USED FOR UNKNOWN INDICATION
     Dosage: DAILY

REACTIONS (4)
  - Asthenia [Recovered/Resolved]
  - Bronchitis [Recovered/Resolved]
  - Muscle spasms [Recovered/Resolved]
  - Cough [Not Recovered/Not Resolved]
